FAERS Safety Report 24408844 (Version 1)
Quarter: 2024Q4

REPORT INFORMATION
  Report Type: Spontaneous
  Country: US (occurrence: US)
  Receive Date: 20241007
  Receipt Date: 20241007
  Transmission Date: 20250115
  Serious: No
  Sender: CSL BEHRING
  Company Number: US-BEH-2024179170

PATIENT
  Age: 16 Year
  Sex: Male

DRUGS (2)
  1. HUMATE-P [Suspect]
     Active Substance: HUMAN COAGULATION FACTOR VIII/VON WILLEBRAND FACTOR COMPLEX
     Indication: Von Willebrand^s disease
     Dosage: 2120-3180 RCOF UNITS, STRENGTH: 2400 RCOF UNITS PRN
     Route: 042
     Dates: start: 201504
  2. HUMATE-P [Suspect]
     Active Substance: HUMAN COAGULATION FACTOR VIII/VON WILLEBRAND FACTOR COMPLEX
     Dosage: 4240-6360 RCOF UNITS, STRENGTH: 1200 RCOF UNITS PRN
     Route: 042
     Dates: start: 201504

REACTIONS (2)
  - Haemorrhage [Unknown]
  - Hand fracture [Unknown]

NARRATIVE: CASE EVENT DATE: 20240916
